FAERS Safety Report 24579160 (Version 1)
Quarter: 2024Q4

REPORT INFORMATION
  Report Type: Spontaneous
  Country: US (occurrence: US)
  Receive Date: 20241105
  Receipt Date: 20241105
  Transmission Date: 20250115
  Serious: Yes (Other)
  Sender: NOVARTIS
  Company Number: US-002147023-NVSC2024US212689

PATIENT

DRUGS (3)
  1. LEQVIO [Suspect]
     Active Substance: INCLISIRAN SODIUM
     Indication: Product used for unknown indication
     Dosage: UNK (284 MG/1.5 ML) (FIRST SHOT)
     Route: 065
     Dates: start: 20240923
  2. TRAMADOL [Concomitant]
     Active Substance: TRAMADOL
     Indication: Injection site pain
     Dosage: 50 MG
     Route: 065
  3. ASPIRIN [Concomitant]
     Active Substance: ASPIRIN
     Indication: Injection site pain
     Dosage: UNK
     Route: 065

REACTIONS (4)
  - Hypertension [Unknown]
  - Diabetes mellitus [Unknown]
  - Injection site pain [Not Recovered/Not Resolved]
  - Vision blurred [Unknown]
